FAERS Safety Report 6737559-5 (Version None)
Quarter: 2010Q2

REPORT INFORMATION
  Report Type: 
  Country: None (occurrence: None)
  Receive Date: 20100521
  Receipt Date: 20100521
  Transmission Date: 20101027
  Serious: Yes (Hospitalization)
  Sender: FDA-Public Use
  Company Number: None

PATIENT
  Age: 73 Year
  Sex: Male
  Weight: 84.5 kg

DRUGS (2)
  1. DEPOCYT [Suspect]
     Indication: METASTASES TO MENINGES
     Dosage: 50MG BIWEEKLY INTRATRACHE
     Route: 039
     Dates: start: 20100325, end: 20100422
  2. SORAFENIB 200MG BAYER [Suspect]
     Indication: METASTASES TO MENINGES
     Dosage: 400MG TWICE DAILY PO
     Route: 048
     Dates: start: 20100325, end: 20100512

REACTIONS (11)
  - BREATH SOUNDS ABNORMAL [None]
  - CHILLS [None]
  - CONFUSIONAL STATE [None]
  - DECUBITUS ULCER [None]
  - HYPOPHAGIA [None]
  - HYPOTENSION [None]
  - OEDEMA PERIPHERAL [None]
  - ORAL CANDIDIASIS [None]
  - PYREXIA [None]
  - SOMNOLENCE [None]
  - WEIGHT DECREASED [None]
